FAERS Safety Report 7913525-9 (Version None)
Quarter: 2011Q4

REPORT INFORMATION
  Report Type: 
  Country: None (occurrence: None)
  Receive Date: 20111110
  Receipt Date: 20111107
  Transmission Date: 20120403
  Serious: Yes (Other)
  Sender: FDA-Public Use
  Company Number: 2011SP052320

PATIENT
  Age: 13 Year
  Sex: Female

DRUGS (3)
  1. SAPHRIS [Suspect]
  2. BUSPIRONE [Concomitant]
  3. SAPHRIS [Suspect]
     Indication: AFFECTIVE DISORDER
     Dates: start: 20111025, end: 20111103

REACTIONS (9)
  - ABNORMAL BEHAVIOUR [None]
  - AGGRESSION [None]
  - SUICIDAL IDEATION [None]
  - OROPHARYNGEAL BLISTERING [None]
  - DROOLING [None]
  - SELF-INJURIOUS IDEATION [None]
  - SKIN IRRITATION [None]
  - NAUSEA [None]
  - SOMNOLENCE [None]
